FAERS Safety Report 20392106 (Version 5)
Quarter: 2022Q2

REPORT INFORMATION
  Report Type: Report from Study
  Country: DE (occurrence: DE)
  Receive Date: 20220128
  Receipt Date: 20220506
  Transmission Date: 20220721
  Serious: Yes (Hospitalization, Other)
  Sender: FDA-Public Use
  Company Number: DE-TAKEDA-2022TUS005472

PATIENT
  Age: 56 Year
  Sex: Male

DRUGS (67)
  1. TEDUGLUTIDE [Suspect]
     Active Substance: TEDUGLUTIDE
     Indication: Short-bowel syndrome
     Dosage: 1.9 MILLIGRAM, QD
     Route: 042
     Dates: start: 20170511, end: 201711
  2. TEDUGLUTIDE [Suspect]
     Active Substance: TEDUGLUTIDE
     Indication: Short-bowel syndrome
     Dosage: 1.9 MILLIGRAM, QD
     Route: 042
     Dates: start: 20170511, end: 201711
  3. TEDUGLUTIDE [Suspect]
     Active Substance: TEDUGLUTIDE
     Indication: Short-bowel syndrome
     Dosage: 1.9 MILLIGRAM, QD
     Route: 042
     Dates: start: 20170511, end: 201711
  4. TEDUGLUTIDE [Suspect]
     Active Substance: TEDUGLUTIDE
     Indication: Short-bowel syndrome
     Dosage: 1.9 MILLIGRAM, QD
     Route: 042
     Dates: start: 20170511, end: 201711
  5. TEDUGLUTIDE [Suspect]
     Active Substance: TEDUGLUTIDE
     Dosage: 1.9 MILLIGRAM, QD
     Route: 042
     Dates: start: 20171201, end: 201804
  6. TEDUGLUTIDE [Suspect]
     Active Substance: TEDUGLUTIDE
     Dosage: 1.9 MILLIGRAM, QD
     Route: 042
     Dates: start: 20171201, end: 201804
  7. TEDUGLUTIDE [Suspect]
     Active Substance: TEDUGLUTIDE
     Dosage: 1.9 MILLIGRAM, QD
     Route: 042
     Dates: start: 20171201, end: 201804
  8. TEDUGLUTIDE [Suspect]
     Active Substance: TEDUGLUTIDE
     Dosage: 1.9 MILLIGRAM, QD
     Route: 042
     Dates: start: 20171201, end: 201804
  9. FALITHROM [Concomitant]
     Active Substance: PHENPROCOUMON
     Dosage: 3 MILLIGRAM
     Route: 048
     Dates: start: 201806
  10. LOPERAMIDE [Concomitant]
     Active Substance: LOPERAMIDE
     Dosage: 2 MILLIGRAM
     Route: 048
     Dates: start: 201806
  11. MOXIFLOXACIN [Concomitant]
     Active Substance: MOXIFLOXACIN
     Dosage: 400 MILLIGRAM, QD
     Route: 048
     Dates: start: 20180115, end: 20180123
  12. CALCITRIOL [Concomitant]
     Active Substance: CALCITRIOL
     Dosage: 0.5 MICROGRAM, QD
     Route: 048
     Dates: start: 201801, end: 201812
  13. LEVOTHYROXINE [Concomitant]
     Active Substance: LEVOTHYROXINE
     Dosage: UNK UNK, QD
     Route: 048
     Dates: start: 20220113
  14. MELATONIN [Concomitant]
     Active Substance: MELATONIN
     Dosage: 2 MILLIGRAM
     Route: 048
     Dates: start: 20220112
  15. MIRTAZAPINE [Concomitant]
     Active Substance: MIRTAZAPINE
     Indication: Adjustment disorder with depressed mood
     Dosage: 45 MILLIGRAM, QD
     Route: 048
     Dates: start: 20220112
  16. EPOETIN ALFA [Concomitant]
     Active Substance: ERYTHROPOIETIN
     Indication: Nephrogenic anaemia
     Dosage: 8000 INTERNATIONAL UNIT, 3/WEEK
     Route: 042
     Dates: start: 20220113
  17. CHOLECALCIFEROL [Concomitant]
     Active Substance: CHOLECALCIFEROL
     Indication: Vitamin D deficiency
     Dosage: 20000 INTERNATIONAL UNIT, 1/WEEK
     Route: 048
     Dates: start: 20140606, end: 20220119
  18. VITAMIN B12 [Concomitant]
     Active Substance: CYANOCOBALAMIN
     Indication: Supplementation therapy
     Dosage: 1000 MICROGRAM, MONTHLY
     Route: 030
     Dates: start: 20140605, end: 201711
  19. MARCUMAR [Concomitant]
     Active Substance: PHENPROCOUMON
     Indication: Hypercoagulation
     Dosage: 3 MILLIGRAM
     Route: 048
     Dates: start: 201710, end: 201711
  20. MARCUMAR [Concomitant]
     Active Substance: PHENPROCOUMON
     Dosage: 3 MILLIGRAM
     Route: 048
     Dates: start: 201905
  21. SODIUM BICARBONATE [Concomitant]
     Active Substance: SODIUM BICARBONATE
     Dosage: 1 GRAM, BID
     Route: 048
     Dates: start: 20140605
  22. SODIUM BICARBONATE [Concomitant]
     Active Substance: SODIUM BICARBONATE
     Dosage: 1 GRAM, BID
     Route: 048
     Dates: start: 2016, end: 2017
  23. SODIUM BICARBONATE [Concomitant]
     Active Substance: SODIUM BICARBONATE
     Dosage: 2 GRAM, BID
     Route: 048
     Dates: start: 2017, end: 2017
  24. SODIUM BICARBONATE [Concomitant]
     Active Substance: SODIUM BICARBONATE
     Dosage: 2 GRAM, TID
     Route: 048
     Dates: start: 2017, end: 2018
  25. SODIUM BICARBONATE [Concomitant]
     Active Substance: SODIUM BICARBONATE
     Dosage: 2 GRAM, QID
     Route: 048
     Dates: start: 2018
  26. CALCIUM CARBONATE [Concomitant]
     Active Substance: CALCIUM CARBONATE
     Indication: Supplementation therapy
     Dosage: 500 MILLIGRAM, BID
     Route: 048
     Dates: start: 20140605
  27. CALCIUM CARBONATE [Concomitant]
     Active Substance: CALCIUM CARBONATE
     Dosage: 1 MILLIGRAM, TID
     Route: 048
     Dates: start: 201806, end: 20220112
  28. ARANESP [Concomitant]
     Active Substance: DARBEPOETIN ALFA
     Indication: Anaemia
     Dosage: 80 MICROGRAM, 1/WEEK
     Dates: start: 20160928
  29. Unacid [Concomitant]
     Indication: Thrombophlebitis
     Dosage: UNK
     Dates: start: 201710, end: 201711
  30. Unacid [Concomitant]
     Indication: Device related infection
     Dosage: UNK
     Route: 065
     Dates: start: 20211211, end: 20211228
  31. Carmen [Concomitant]
     Indication: Hypertension
     Dosage: 10 MILLIGRAM, BID
     Route: 048
     Dates: start: 201712, end: 201801
  32. Carmen [Concomitant]
     Dosage: 10 MILLIGRAM, QD
     Route: 048
     Dates: start: 20180101
  33. MOXONIDINE [Concomitant]
     Active Substance: MOXONIDINE
     Indication: Hypertension
     Dosage: 0.2 MILLIGRAM, BID
     Route: 048
     Dates: start: 201711, end: 201801
  34. MOXONIDINE [Concomitant]
     Active Substance: MOXONIDINE
     Dosage: 0.3 MILLIGRAM, BID
     Route: 048
     Dates: start: 201801
  35. ALFACALCIDOL [Concomitant]
     Active Substance: ALFACALCIDOL
     Indication: Hypocalcaemia
     Dosage: 1 MICROGRAM, QD
     Route: 042
     Dates: start: 201710, end: 201711
  36. ALFACALCIDOL [Concomitant]
     Active Substance: ALFACALCIDOL
     Dosage: 1 MICROGRAM, 3/WEEK
     Route: 042
     Dates: start: 201712
  37. UNSPECIFIED INGREDIENT [Concomitant]
     Active Substance: UNSPECIFIED INGREDIENT
     Indication: Hyperphosphataemia
     Dosage: UNK
     Route: 065
     Dates: start: 201801, end: 201801
  38. FOLIC ACID [Concomitant]
     Active Substance: FOLIC ACID
     Indication: Folate deficiency
     Dosage: 5 MILLIGRAM, QD
     Route: 048
     Dates: start: 201808, end: 201812
  39. FURACINE [Concomitant]
     Indication: Iron deficiency
     Dosage: 30 MILLIGRAM, QD
     Route: 048
     Dates: start: 201808, end: 201810
  40. CALCIUM CARBONATE\ERGOCALCIFEROL\RETINOL [Concomitant]
     Active Substance: CALCIUM CARBONATE\ERGOCALCIFEROL\RETINOL
     Indication: Vitamin D deficiency
     Dosage: 0.5 MICROGRAM, QD
     Route: 048
     Dates: start: 201808, end: 201812
  41. CALCIUM CARBONATE\ERGOCALCIFEROL\RETINOL [Concomitant]
     Active Substance: CALCIUM CARBONATE\ERGOCALCIFEROL\RETINOL
     Dosage: 0.5 MICROGRAM, QD
     Route: 048
     Dates: start: 201801, end: 201812
  42. TORSEMIDE [Concomitant]
     Active Substance: TORSEMIDE
     Indication: Renal failure
     Dosage: 50 MILLIGRAM, QD
     Route: 048
     Dates: start: 201606
  43. SPIRONOLACTONE [Concomitant]
     Active Substance: SPIRONOLACTONE
     Indication: Hypervolaemia
     Dosage: 100 MILLIGRAM, QD
     Route: 048
     Dates: start: 201506
  44. CHOLECALCIFEROL [Concomitant]
     Active Substance: CHOLECALCIFEROL
     Indication: Vitamin supplementation
     Dosage: 20000 INTERNATIONAL UNIT, 1/WEEK
     Route: 048
     Dates: start: 201806
  45. XIPAMIDE [Concomitant]
     Active Substance: XIPAMIDE
     Indication: Hypervolaemia
     Dosage: 40 MILLIGRAM, QD
     Route: 048
     Dates: start: 2017, end: 201801
  46. XIPAMIDE [Concomitant]
     Active Substance: XIPAMIDE
     Dosage: 20 MILLIGRAM, QD
     Route: 048
     Dates: start: 20180101
  47. SODIUM FERRIC GLUCONATE COMPLEX [Concomitant]
     Active Substance: SODIUM FERRIC GLUCONATE COMPLEX
     Indication: Nephrogenic anaemia
     Dosage: 62.5 MILLIGRAM
     Route: 042
  48. VITAMIN B12 [Concomitant]
     Active Substance: CYANOCOBALAMIN
     Indication: Supplementation therapy
     Dosage: 2000 MICROGRAM, 1/WEEK
     Route: 030
     Dates: start: 201711, end: 202004
  49. Selenase [Concomitant]
     Indication: Supplementation therapy
     Dosage: 1 MILLIGRAM, QD
     Route: 048
     Dates: start: 201710, end: 20220113
  50. Selenase [Concomitant]
     Dosage: 300 MICROGRAM
     Route: 048
     Dates: start: 20220113
  51. NADROPARIN CALCIUM [Concomitant]
     Active Substance: NADROPARIN CALCIUM
     Indication: Anticoagulant therapy
     Dosage: 0.6 MILLILITER, BID
     Route: 058
     Dates: start: 201711, end: 201801
  52. ALUMINUM CHLOROHYDRATE [Concomitant]
     Active Substance: ALUMINUM CHLOROHYDRATE
     Dosage: 600 MILLIGRAM, BID
     Route: 048
     Dates: start: 201801
  53. DOXCEF [Concomitant]
     Dosage: 2 MILLIGRAM, BID
     Route: 048
     Dates: start: 201801
  54. RENAGEL [Concomitant]
     Active Substance: SEVELAMER HYDROCHLORIDE
     Dosage: 1600 MILLIGRAM, TID
     Route: 048
     Dates: start: 201801
  55. CALCIUM ACETATE [Concomitant]
     Active Substance: CALCIUM ACETATE
     Indication: Supplementation therapy
     Dosage: 1900 MILLIGRAM, QID
     Route: 048
     Dates: start: 201801, end: 201806
  56. CALCIUM ACETATE [Concomitant]
     Active Substance: CALCIUM ACETATE
     Dosage: 500 MILLIGRAM, TID
     Route: 048
     Dates: start: 20220112
  57. VANCOMYCIN [Concomitant]
     Active Substance: VANCOMYCIN
     Indication: Sepsis
     Dosage: 0.5 MICROGRAM, QD
     Route: 065
     Dates: start: 20211209, end: 20220108
  58. PIPERACILLIN AND TAZOBACTAM [Concomitant]
     Active Substance: PIPERACILLIN SODIUM\TAZOBACTAM SODIUM
     Indication: Sepsis
     Dosage: 4.5 GRAM
     Dates: start: 202109, end: 202112
  59. FLUCONAZOLE [Concomitant]
     Active Substance: FLUCONAZOLE
     Indication: Sepsis
     Dosage: 100 MILLIGRAM
     Route: 065
     Dates: start: 20211019, end: 20211115
  60. CEFAZOLIN [Concomitant]
     Active Substance: CEFAZOLIN
     Indication: Sepsis
     Dosage: 2 GRAM
     Route: 065
     Dates: start: 202111, end: 20211111
  61. BUPRENORPHINE [Concomitant]
     Active Substance: BUPRENORPHINE
     Indication: Pain
     Dosage: 0.2 MILLIGRAM
     Route: 060
     Dates: start: 20220112
  62. DIMENHYDRINATE [Concomitant]
     Active Substance: DIMENHYDRINATE
     Dosage: 50 MILLIGRAM
     Route: 048
     Dates: start: 20220112
  63. ZINC [Concomitant]
     Active Substance: ZINC
     Indication: Supplementation therapy
     Dosage: 10 MILLIGRAM, QD
     Route: 048
     Dates: start: 20220119
  64. HYDROMORPHONE [Concomitant]
     Active Substance: HYDROMORPHONE
     Indication: Pain
     Dosage: 2 MILLIGRAM, BID
     Route: 048
     Dates: start: 20220112
  65. PANTOPRAZOLE [Concomitant]
     Active Substance: PANTOPRAZOLE
     Indication: Hyperchlorhydria
     Dosage: 40 MILLIGRAM, BID
     Route: 048
     Dates: start: 20220112
  66. ENOXAPARIN [Concomitant]
     Active Substance: ENOXAPARIN
     Indication: Anticoagulant therapy
     Dosage: 4000 INTERNATIONAL UNIT, BID
     Route: 058
     Dates: start: 20220112
  67. PREGABALIN [Concomitant]
     Active Substance: PREGABALIN
     Indication: Pain
     Dosage: 20 MILLIGRAM, QD
     Route: 048
     Dates: start: 20220113

REACTIONS (1)
  - Pericardial effusion [Recovered/Resolved]

NARRATIVE: CASE EVENT DATE: 20200901
